FAERS Safety Report 5200451-1 (Version None)
Quarter: 2006Q4

REPORT INFORMATION
  Report Type: 
  Country: None (occurrence: None)
  Receive Date: 20061016
  Receipt Date: 20060706
  Transmission Date: 20070319
  Serious: No
  Sender: FDA-Public Use
  Company Number: 2006SP003069

PATIENT

DRUGS (2)
  1. LUNESTA [Suspect]
     Dosage: 3 MG; ORAL
     Route: 048
  2. REQUIP [Concomitant]

REACTIONS (1)
  - DRUG EFFECT DECREASED [None]
